FAERS Safety Report 4944907-5 (Version None)
Quarter: 2006Q1

REPORT INFORMATION
  Report Type: 
  Country: None (occurrence: None)
  Receive Date: 20060315
  Receipt Date: 20050706
  Transmission Date: 20060701
  Serious: Yes (Hospitalization, Disabling)
  Sender: FDA-Public Use
  Company Number: US-MERCK-0507USA01006

PATIENT
  Age: 58 Year
  Sex: Male
  Weight: 66 kg

DRUGS (6)
  1. VIOXX [Suspect]
     Indication: ARTHRITIS
     Route: 048
     Dates: start: 20040315, end: 20040701
  2. VIOXX [Suspect]
     Indication: PAIN IN EXTREMITY
     Route: 048
     Dates: start: 20040315, end: 20040701
  3. ATENOLOL [Concomitant]
     Route: 065
  4. OS-CAL [Concomitant]
     Route: 065
  5. ASPIRIN [Concomitant]
     Route: 065
  6. TYLENOL ARTHRITIS EXTENDED RELIEF [Concomitant]
     Route: 065

REACTIONS (9)
  - ADJUSTMENT DISORDER WITH DEPRESSED MOOD [None]
  - ASTHENIA [None]
  - CEREBROVASCULAR ACCIDENT [None]
  - CHEST PAIN [None]
  - DIPLOPIA [None]
  - HYPERCHOLESTEROLAEMIA [None]
  - HYPERTENSION [None]
  - PARAESTHESIA [None]
  - RASH PRURITIC [None]
